FAERS Safety Report 19812765 (Version 3)
Quarter: 2022Q1

REPORT INFORMATION
  Report Type: Report from Study
  Country: GB (occurrence: GB)
  Receive Date: 20210910
  Receipt Date: 20220210
  Transmission Date: 20220423
  Serious: Yes (Hospitalization, Other)
  Sender: FDA-Public Use
  Company Number: GB-GLAXOSMITHKLINE-GB2021GSK190372

PATIENT
  Age: 43 Year
  Sex: Female
  Weight: 48.9 kg

DRUGS (32)
  1. BELIMUMAB [Suspect]
     Active Substance: BELIMUMAB
     Indication: Systemic lupus erythematosus
     Dosage: 496 INTERMITTENT / EPISODIC CYC
     Route: 042
     Dates: start: 20171107, end: 20171107
  2. BELIMUMAB [Suspect]
     Active Substance: BELIMUMAB
     Dosage: 496 INTERMITTENT / EPISODIC CYC
     Route: 042
     Dates: start: 20171124, end: 20171124
  3. BELIMUMAB [Suspect]
     Active Substance: BELIMUMAB
     Dosage: 510 INTERMITTENT / EPISODIC CYC
     Route: 042
     Dates: start: 20180206, end: 20180206
  4. BELIMUMAB [Suspect]
     Active Substance: BELIMUMAB
     Dosage: 510 INTERMITTENT / EPISODIC CYC
     Route: 042
     Dates: start: 20180323, end: 20180323
  5. BELIMUMAB [Suspect]
     Active Substance: BELIMUMAB
     Dosage: 510 INTERMITTENT / EPISODIC CYC
     Route: 042
     Dates: start: 20180427, end: 20180427
  6. BELIMUMAB [Suspect]
     Active Substance: BELIMUMAB
     Dosage: 510 INTERMITTENT / EPISODIC CYC
     Route: 042
     Dates: start: 20180522, end: 20180522
  7. BELIMUMAB [Suspect]
     Active Substance: BELIMUMAB
     Dosage: 510 INTERMITTENT / EPISODIC CYC
     Route: 042
     Dates: start: 20180712, end: 20180712
  8. BELIMUMAB [Suspect]
     Active Substance: BELIMUMAB
     Dosage: 510 INTERMITTENT / EPISODIC CYC
     Route: 042
     Dates: start: 20180928, end: 20180928
  9. BELIMUMAB [Suspect]
     Active Substance: BELIMUMAB
     Dosage: 510 INTERMITTENT / EPISODIC CYC
     Route: 042
     Dates: start: 20181026, end: 20181026
  10. BELIMUMAB [Suspect]
     Active Substance: BELIMUMAB
     Dosage: 510 INTERMITTENT / EPISODIC CYC
     Route: 042
     Dates: start: 20181123, end: 20181123
  11. BELIMUMAB [Suspect]
     Active Substance: BELIMUMAB
     Dosage: 510 INTERMITTENT / EPISODIC CYC
     Route: 042
     Dates: start: 20181221, end: 20181221
  12. BELIMUMAB [Suspect]
     Active Substance: BELIMUMAB
     Dosage: 510 INTERMITTENT / EPISODIC CYC
     Route: 042
     Dates: start: 20190129, end: 20190129
  13. BELIMUMAB [Suspect]
     Active Substance: BELIMUMAB
     Dosage: 510 INTERMITTENT / EPISODIC CYC
     Route: 042
     Dates: start: 20190226, end: 20190226
  14. BELIMUMAB [Suspect]
     Active Substance: BELIMUMAB
     Dosage: 510 INTERMITTENT / EPISODIC CYC
     Route: 042
     Dates: start: 20190402, end: 20190402
  15. BELIMUMAB [Suspect]
     Active Substance: BELIMUMAB
     Dosage: 510 INTERMITTENT / EPISODIC CYC
     Route: 042
     Dates: start: 20190507, end: 20190507
  16. BELIMUMAB [Suspect]
     Active Substance: BELIMUMAB
     Dosage: 510 INTERMITTENT / EPISODIC CYC
     Route: 042
     Dates: start: 20190611, end: 20190611
  17. BELIMUMAB [Suspect]
     Active Substance: BELIMUMAB
     Dosage: 510 INTERMITTENT / EPISODIC CYC
     Route: 042
     Dates: start: 20190716, end: 20190716
  18. BELIMUMAB [Suspect]
     Active Substance: BELIMUMAB
     Dosage: 510 INTERMITTENT / EPISODIC CYC
     Route: 042
     Dates: start: 20200313, end: 20200313
  19. BELIMUMAB [Suspect]
     Active Substance: BELIMUMAB
     Dosage: 510 INTERMITTENT / EPISODIC CYC
     Route: 042
     Dates: start: 20200327, end: 20200327
  20. BELIMUMAB [Suspect]
     Active Substance: BELIMUMAB
     Dosage: 510 INTERMITTENT / EPISODIC CYC
     Route: 042
     Dates: start: 20200428, end: 20200428
  21. BELIMUMAB [Suspect]
     Active Substance: BELIMUMAB
     Dosage: 510 INTERMITTENT / EPISODIC CYC
     Route: 042
     Dates: start: 20200526, end: 20200526
  22. ALFACALCIDOL [Concomitant]
     Active Substance: ALFACALCIDOL
     Indication: Product used for unknown indication
     Dosage: UNK
     Dates: start: 20190319
  23. AMLODIPINE [Concomitant]
     Active Substance: AMLODIPINE BESYLATE
     Indication: Product used for unknown indication
     Dosage: UNK
     Dates: start: 20181123
  24. AVEENO [Concomitant]
     Active Substance: DIMETHICONE\HOMOSALATE\OCTINOXATE\OCTISALATE\TITANIUM DIOXIDE
     Indication: Product used for unknown indication
     Dosage: UNK
     Dates: start: 20171020
  25. DOXAZOSIN [Concomitant]
     Active Substance: DOXAZOSIN MESYLATE
     Indication: Product used for unknown indication
     Dosage: UNK
     Dates: start: 20190628
  26. CARBOHYDRATES\FATTY ACIDS\MINERALS\PROTEIN\VITAMINS [Concomitant]
     Active Substance: CARBOHYDRATES\FATTY ACIDS\MINERALS\PROTEIN\VITAMINS
     Indication: Product used for unknown indication
     Dosage: UNK
     Dates: start: 20200305
  27. FUROSEMIDE [Concomitant]
     Active Substance: FUROSEMIDE
     Indication: Product used for unknown indication
     Dosage: UNK
     Dates: start: 20191001
  28. HYDROXYCHLOROQUINE [Concomitant]
     Active Substance: HYDROXYCHLOROQUINE
     Indication: Product used for unknown indication
     Dosage: UNK
     Dates: start: 20100901
  29. LANSOPRAZOLE [Concomitant]
     Active Substance: LANSOPRAZOLE
     Indication: Product used for unknown indication
     Dosage: UNK
     Dates: start: 20200123
  30. PREDNISOLONE [Concomitant]
     Active Substance: PREDNISOLONE
     Indication: Product used for unknown indication
     Dosage: UNK
     Dates: start: 2003
  31. RENAVIT [Concomitant]
     Indication: Product used for unknown indication
     Dosage: UNK
     Dates: start: 20200302
  32. WARFARIN [Concomitant]
     Active Substance: WARFARIN
     Indication: Product used for unknown indication
     Dosage: UNK
     Dates: start: 20190416

REACTIONS (3)
  - COVID-19 pneumonia [Recovered/Resolved]
  - Productive cough [Recovered/Resolved]
  - Dyspnoea [Recovered/Resolved]

NARRATIVE: CASE EVENT DATE: 20200326
